FAERS Safety Report 21721052 (Version 2)
Quarter: 2024Q3

REPORT INFORMATION
  Report Type: Spontaneous
  Country: FR (occurrence: FR)
  Receive Date: 20221213
  Receipt Date: 20240707
  Transmission Date: 20241017
  Serious: Yes (Death)
  Sender: ROCHE
  Company Number: None

PATIENT
  Age: 68 Year
  Sex: Female
  Weight: 56.0 kg

DRUGS (2)
  1. OBINUTUZUMAB [Suspect]
     Active Substance: OBINUTUZUMAB
     Indication: Chronic lymphocytic leukaemia
     Dosage: UNKNOWN DOSE
     Route: 042
     Dates: start: 20220903, end: 20220915
  2. CALQUENCE [Suspect]
     Active Substance: ACALABRUTINIB
     Indication: Chronic lymphocytic leukaemia
     Dosage: 1FP
     Route: 065
     Dates: start: 20220903, end: 20221003

REACTIONS (2)
  - Pneumocystis jirovecii pneumonia [Fatal]
  - Aspergillus infection [Fatal]

NARRATIVE: CASE EVENT DATE: 20221001
